FAERS Safety Report 4818523-X (Version None)
Quarter: 2005Q4

REPORT INFORMATION
  Report Type: 
  Country: None (occurrence: None)
  Receive Date: 20051101
  Receipt Date: 20051101
  Transmission Date: 20060501
  Serious: Yes (Hospitalization, Other)
  Sender: FDA-Public Use
  Company Number: None

PATIENT
  Sex: Male
  Weight: 70 kg

DRUGS (5)
  1. INTERLEUKIN 2 RECOMBINANT [Suspect]
     Indication: MALIGNANT MELANOMA
     Dosage: SEE IMAGE
     Route: 042
     Dates: start: 20050927
  2. COLACE [Concomitant]
  3. MS IR [Concomitant]
  4. PROCHLORPERAZINE [Concomitant]
  5. MORPHINE SULFATE CONTIN [Concomitant]

REACTIONS (1)
  - DEHYDRATION [None]
